FAERS Safety Report 10502240 (Version 2)
Quarter: 2014Q4

REPORT INFORMATION
  Report Type: Spontaneous
  Country: US (occurrence: US)
  Receive Date: 20141007
  Receipt Date: 20141007
  Transmission Date: 20150528
  Serious: Yes (Death, Hospitalization, Other)
  Sender: FDA-Public Use
  Company Number: US-US-EMD SERONO, INC.-237433K06USA

PATIENT
  Age: 56 Year
  Sex: Female

DRUGS (1)
  1. REBIF [Suspect]
     Active Substance: INTERFERON BETA-1A
     Indication: MULTIPLE SCLEROSIS
     Dates: start: 20020605, end: 20060605

REACTIONS (4)
  - Fungal infection [Unknown]
  - Acute leukaemia [Unknown]
  - Pneumonia [Unknown]
  - Cardiac failure [Fatal]

NARRATIVE: CASE EVENT DATE: 2006
